FAERS Safety Report 9122460 (Version 2)
Quarter: 2013Q1

REPORT INFORMATION
  Report Type: Spontaneous
  Country: US (occurrence: US)
  Receive Date: 20130227
  Receipt Date: 20130308
  Transmission Date: 20140127
  Serious: Yes (Other)
  Sender: FDA-Public Use
  Company Number: US-PFIZER INC-2013065840

PATIENT
  Age: 60 Year
  Sex: Female
  Weight: 46.7 kg

DRUGS (10)
  1. EFFEXOR [Suspect]
     Indication: BIPOLAR DISORDER
     Dosage: 37.5 MG, UNK (EITHER 2 OR 3 TIMES A DAY)
     Dates: start: 20121210
  2. EFFEXOR [Suspect]
     Indication: FIBROMYALGIA
     Dosage: UNK
     Dates: end: 201212
  3. GABAPENTIN [Suspect]
     Indication: FIBROMYALGIA
     Dosage: 100 MG, 3X/DAY
     Dates: start: 20130206, end: 201302
  4. LYRICA [Suspect]
     Indication: FIBROMYALGIA
     Dosage: 75 MG, DAILY
     Dates: start: 2010, end: 201207
  5. LYRICA [Suspect]
     Dosage: UNK
     Dates: end: 201207
  6. ALPRAZOLAM [Suspect]
     Indication: ANXIETY
     Dosage: UNK
  7. AMLODIPINE [Concomitant]
     Indication: HYPERTENSION
     Dosage: 2.5 MG, 2X/DAY
     Dates: start: 20130117
  8. AMLODIPINE [Concomitant]
     Dosage: UNK
  9. CLONAZEPAM [Concomitant]
     Dosage: UNK
  10. HYDROCODONE [Concomitant]
     Dosage: UNK

REACTIONS (12)
  - Multiple fractures [Unknown]
  - Contusion [Unknown]
  - Osteoporosis [Unknown]
  - Weight decreased [Unknown]
  - Nausea [Unknown]
  - Arthritis [Unknown]
  - Vitamin D decreased [Unknown]
  - Drug ineffective [Unknown]
  - Off label use [Unknown]
  - Dizziness [Unknown]
  - Tremor [Unknown]
  - Anxiety [Unknown]
